FAERS Safety Report 4865835-X (Version None)
Quarter: 2005Q4

REPORT INFORMATION
  Report Type: 
  Country: None (occurrence: None)
  Receive Date: 20051220
  Receipt Date: 20051207
  Transmission Date: 20060501
  Serious: Yes (Life-Threatening, Other)
  Sender: FDA-Public Use
  Company Number: 2005139719

PATIENT
  Age: 36 Year
  Sex: Female
  Weight: 54 kg

DRUGS (10)
  1. AZITHROMYCIN [Suspect]
     Indication: BRONCHITIS ACUTE
     Dosage: 500 MG (500 MG, 1 IN 1 D); ORAL
     Route: 048
     Dates: start: 20050930, end: 20051001
  2. LOXONIN (LOXOPROFEN SODIUM) [Suspect]
     Indication: BRONCHITIS ACUTE
     Dosage: 180 MG (60 MG, 1 IN 3 D); ORAL
     Route: 048
     Dates: start: 20050930, end: 20051001
  3. ASGEN (CAFFEINE AND SODIUM BENZOATE, EPHEDRINE, MAGNESIUM OXIDE, PARAC [Suspect]
     Indication: BRONCHITIS ACUTE
     Dosage: 1 TABLET THREE TIMES DAILY; ORAL
     Route: 048
     Dates: start: 20050930, end: 20051001
  4. HOKUNALIN (TULOBUTEROL HYDROCHLORIDE) [Concomitant]
  5. BIOFERMIN (BACILLUS SUBTILIS, LACTOBACILLUS ACIDOPHILUS, STREPTOCOCCUS [Concomitant]
  6. SELBEX (TEPRENONE) [Concomitant]
  7. CELESTAMINE TAB [Concomitant]
  8. VENETLIN (SALBUTAMOL SULFATE) [Concomitant]
  9. ALEVAIRE (TYLOXAPOL) [Concomitant]
  10. INTAL [Concomitant]

REACTIONS (5)
  - DYSPNOEA [None]
  - GENERALISED OEDEMA [None]
  - OEDEMA [None]
  - PRURITUS [None]
  - URTICARIA [None]
